FAERS Safety Report 11464378 (Version 2)
Quarter: 2015Q3

REPORT INFORMATION
  Report Type: Spontaneous
  Country: US (occurrence: US)
  Receive Date: 20150831
  Receipt Date: 20150903
  Transmission Date: 20151125
  Serious: Yes (Hospitalization)
  Sender: FDA-Public Use
  Company Number: US-ELI_LILLY_AND_COMPANY-US201107007885

PATIENT
  Age: 45 Year
  Sex: Male

DRUGS (4)
  1. DILAUDID                                /USA/ [Concomitant]
  2. XANAX [Concomitant]
     Active Substance: ALPRAZOLAM
  3. OPIOIDS [Concomitant]
     Active Substance: UNSPECIFIED INGREDIENT
  4. CYMBALTA [Suspect]
     Active Substance: DULOXETINE HYDROCHLORIDE
     Indication: DEPRESSION
     Dosage: 30 MG, UNKNOWN

REACTIONS (1)
  - Suicide attempt [Recovered/Resolved]
